FAERS Safety Report 20331329 (Version 1)
Quarter: 2022Q1

REPORT INFORMATION
  Report Type: Spontaneous
  Country: IT (occurrence: IT)
  Receive Date: 20220113
  Receipt Date: 20220113
  Transmission Date: 20220424
  Serious: Yes (Hospitalization)
  Sender: FDA-Public Use
  Company Number: None

PATIENT
  Age: 86 Year
  Sex: Male

DRUGS (12)
  1. ASPIRIN [Suspect]
     Active Substance: ASPIRIN
     Dosage: 1 DF, QD
     Dates: start: 20210101, end: 20211201
  2. CLOPIDOGREL BISULFATE [Suspect]
     Active Substance: CLOPIDOGREL BISULFATE
     Dosage: 75 MG, QD
     Route: 048
     Dates: start: 20210101, end: 20211201
  3. KEPPRA [Concomitant]
     Active Substance: LEVETIRACETAM
     Dosage: 2 DF
     Route: 048
  4. ALLOPURINOL [Concomitant]
     Active Substance: ALLOPURINOL
     Dosage: UNK
  5. ATORVASTATIN [Concomitant]
     Active Substance: ATORVASTATIN
     Dosage: UNK
  6. METFORMIN HYDROCHLORIDE [Concomitant]
     Active Substance: METFORMIN HYDROCHLORIDE
     Dosage: 1500 MG
  7. OMEPRAZOLE [Concomitant]
     Active Substance: OMEPRAZOLE
  8. RANEXA [RANOLAZINE] [Concomitant]
     Dosage: 2 DF
  9. FOLIC ACID [Concomitant]
     Active Substance: FOLIC ACID
  10. LASIX [Concomitant]
     Active Substance: FUROSEMIDE
     Dosage: UNK
  11. BISOPROLOL [Concomitant]
     Active Substance: BISOPROLOL
     Dosage: UNK
  12. OLMESARTAN MEDOXOMIL [Concomitant]
     Active Substance: OLMESARTAN MEDOXOMIL
     Dosage: 40 MG

REACTIONS (1)
  - Paranasal sinus haematoma [Recovering/Resolving]

NARRATIVE: CASE EVENT DATE: 20211201
